FAERS Safety Report 20938972 (Version 1)
Quarter: 2022Q2

REPORT INFORMATION
  Report Type: Spontaneous
  Country: US (occurrence: US)
  Receive Date: 20220609
  Receipt Date: 20220609
  Transmission Date: 20220721
  Serious: No
  Sender: FDA-Public Use
  Company Number: US-NIPPON SHINYAKU-NIP-2022-000016

PATIENT

DRUGS (1)
  1. VILTEPSO [Suspect]
     Active Substance: VILTOLARSEN
     Indication: Product used for unknown indication
     Route: 042

REACTIONS (2)
  - Fall [Unknown]
  - Contusion [Unknown]
